FAERS Safety Report 22253787 (Version 1)
Quarter: 2023Q2

REPORT INFORMATION
  Report Type: Spontaneous
  Country: US (occurrence: US)
  Receive Date: 20230426
  Receipt Date: 20230426
  Transmission Date: 20230721
  Serious: Yes (Other)
  Sender: FDA-Public Use
  Company Number: US-009507513-2304USA009171

PATIENT
  Sex: Female

DRUGS (1)
  1. KEYTRUDA [Suspect]
     Active Substance: PEMBROLIZUMAB
     Indication: Renal cell carcinoma
     Dosage: UNK
     Dates: start: 202301, end: 2023

REACTIONS (4)
  - Neuropathy peripheral [Unknown]
  - Noninfective encephalitis [Unknown]
  - Bone pain [Unknown]
  - Paraesthesia [Unknown]

NARRATIVE: CASE EVENT DATE: 20230101
